FAERS Safety Report 18630713 (Version 1)
Quarter: 2020Q4

REPORT INFORMATION
  Report Type: Report from Study
  Country: US (occurrence: US)
  Receive Date: 20201218
  Receipt Date: 20201218
  Transmission Date: 20210114
  Serious: Yes (Death, Hospitalization, Other)
  Sender: FDA-Public Use
  Company Number: US-SUN PHARMACEUTICAL INDUSTRIES LTD-2020R1-267628

PATIENT
  Age: 2 Month
  Sex: Male

DRUGS (1)
  1. BOSENTAN. [Suspect]
     Active Substance: BOSENTAN
     Indication: PULMONARY ARTERIAL HYPERTENSION
     Dosage: 1.8 MILLIGRAM, BID
     Route: 048
     Dates: start: 202010, end: 20201122

REACTIONS (2)
  - Acute respiratory failure [Fatal]
  - Off label use [Unknown]

NARRATIVE: CASE EVENT DATE: 20201105
